FAERS Safety Report 19640086 (Version 1)
Quarter: 2021Q3

REPORT INFORMATION
  Report Type: Spontaneous
  Country: US (occurrence: US)
  Receive Date: 20210730
  Receipt Date: 20210730
  Transmission Date: 20211014
  Serious: No
  Sender: FDA-Public Use
  Company Number: US-PFIZER INC-202100923690

PATIENT
  Sex: Female

DRUGS (1)
  1. IBRANCE [Suspect]
     Active Substance: PALBOCICLIB
     Dosage: UNK

REACTIONS (7)
  - C-reactive protein increased [Unknown]
  - Back pain [Unknown]
  - Troponin increased [Unknown]
  - Platelet count decreased [Unknown]
  - Chest pain [Unknown]
  - Hepatic enzyme increased [Unknown]
  - Arthralgia [Unknown]
